FAERS Safety Report 7050536-2 (Version None)
Quarter: 2010Q4

REPORT INFORMATION
  Report Type: 
  Country: None (occurrence: None)
  Receive Date: 20101018
  Receipt Date: 20101011
  Transmission Date: 20110411
  Serious: Yes (Other)
  Sender: FDA-Public Use
  Company Number: US-PFIZER INC-2010129427

PATIENT
  Sex: Male
  Weight: 84 kg

DRUGS (4)
  1. CHANTIX [Suspect]
     Indication: SMOKING CESSATION THERAPY
     Dosage: 0.5 MG, 1X/DAY
     Route: 048
     Dates: start: 20100816
  2. CHANTIX [Suspect]
     Dosage: 0.5 MG, 2X/DAY
     Dates: end: 20101010
  3. CHANTIX [Suspect]
     Dosage: 1 MG, 2X/DAY
     Dates: end: 20101010
  4. IBUPROFEN [Concomitant]
     Indication: HEADACHE
     Dosage: FREQUENCY: AS NEEDED

REACTIONS (2)
  - DEPRESSED MOOD [None]
  - NERVOUSNESS [None]
